FAERS Safety Report 10614702 (Version 8)
Quarter: 2015Q2

REPORT INFORMATION
  Report Type: Report from Study
  Country: CA (occurrence: CA)
  Receive Date: 20141201
  Receipt Date: 20150617
  Transmission Date: 20150821
  Serious: Yes (Other)
  Sender: FDA-Public Use
  Company Number: CA-ROCHE-1296609

PATIENT
  Age: 64 Year
  Sex: Female
  Weight: 90 kg

DRUGS (18)
  1. ACTEMRA [Suspect]
     Active Substance: TOCILIZUMAB
     Route: 042
     Dates: start: 20131106
  2. ELTROXIN [Concomitant]
     Active Substance: LEVOTHYROXINE
  3. LENOLTEC #3 [Concomitant]
  4. ACTEMRA [Suspect]
     Active Substance: TOCILIZUMAB
     Indication: RHEUMATOID ARTHRITIS
     Route: 042
     Dates: start: 20130312
  5. ACTEMRA [Suspect]
     Active Substance: TOCILIZUMAB
     Route: 042
     Dates: start: 20150120
  6. APO-HYDROXYQUINE [Concomitant]
  7. MAVIK [Concomitant]
     Active Substance: TRANDOLAPRIL
  8. ALOE VERA [Concomitant]
     Active Substance: ALOE VERA LEAF
     Indication: DYSPEPSIA
     Route: 065
  9. ACTEMRA [Suspect]
     Active Substance: TOCILIZUMAB
     Route: 042
     Dates: start: 20140513
  10. ACTEMRA [Suspect]
     Active Substance: TOCILIZUMAB
     Route: 042
     Dates: start: 20141229
  11. ACTEMRA [Suspect]
     Active Substance: TOCILIZUMAB
     Route: 042
     Dates: start: 20150126
  12. APO-LANSOPRAZOLE [Concomitant]
  13. ACTEMRA [Suspect]
     Active Substance: TOCILIZUMAB
     Route: 042
     Dates: start: 20130409
  14. CELEBREX [Concomitant]
     Active Substance: CELECOXIB
  15. FOLIC ACID. [Concomitant]
     Active Substance: FOLIC ACID
  16. TRIMIPRAMINE [Concomitant]
     Active Substance: TRIMIPRAMINE
     Route: 065
  17. OXYBUTYNIN [Concomitant]
     Active Substance: OXYBUTYNIN
  18. SENNOSIDE [Concomitant]
     Active Substance: SENNOSIDES

REACTIONS (8)
  - Blood test abnormal [Unknown]
  - Blood pressure increased [Unknown]
  - Weight increased [Unknown]
  - Blood test abnormal [Unknown]
  - Infusion related reaction [Unknown]
  - Cholelithiasis [Recovered/Resolved]
  - Hypotension [Unknown]
  - Abdominal pain [Unknown]

NARRATIVE: CASE EVENT DATE: 201310
